FAERS Safety Report 20573016 (Version 1)
Quarter: 2022Q1

REPORT INFORMATION
  Report Type: Spontaneous
  Country: US (occurrence: US)
  Receive Date: 20220309
  Receipt Date: 20220309
  Transmission Date: 20220423
  Serious: Yes (Hospitalization)
  Sender: FDA-Public Use
  Company Number: US-ELI_LILLY_AND_COMPANY-US202202011427

PATIENT
  Age: 77 Year
  Sex: Female

DRUGS (4)
  1. BASAGLAR [Suspect]
     Active Substance: INSULIN GLARGINE
     Indication: Type 2 diabetes mellitus
     Dosage: 42 U, DAILY NIGHT
     Route: 058
     Dates: start: 2017
  2. BASAGLAR [Suspect]
     Active Substance: INSULIN GLARGINE
     Indication: Type 2 diabetes mellitus
     Dosage: 42 U, DAILY NIGHT
     Route: 058
     Dates: start: 2017
  3. BASAGLAR [Suspect]
     Active Substance: INSULIN GLARGINE
     Dosage: 42 U, DAILY NIGHT
     Route: 058
  4. BASAGLAR [Suspect]
     Active Substance: INSULIN GLARGINE
     Dosage: 42 U, DAILY NIGHT
     Route: 058

REACTIONS (1)
  - Gangrene [Recovering/Resolving]

NARRATIVE: CASE EVENT DATE: 20220204
